APPROVED DRUG PRODUCT: SITAGLIPTIN PHOSPHATE
Active Ingredient: SITAGLIPTIN PHOSPHATE
Strength: EQ 25MG BASE
Dosage Form/Route: TABLET;ORAL
Application: A202387 | Product #001 | TE Code: AB
Applicant: SANDOZ INC
Approved: Jan 14, 2026 | RLD: No | RS: No | Type: RX